FAERS Safety Report 6389229-3 (Version None)
Quarter: 2009Q4

REPORT INFORMATION
  Report Type: 
  Country: None (occurrence: None)
  Receive Date: 20091006
  Receipt Date: 20090924
  Transmission Date: 20100525
  Serious: Yes (Other)
  Sender: FDA-Public Use
  Company Number: PHEH2009US12032

PATIENT
  Sex: Female

DRUGS (4)
  1. AFINITOR [Suspect]
     Dosage: 10 MG, UNK
     Route: 065
  2. SANDOSTATIN [Concomitant]
     Dosage: UNK, UNK
     Route: 065
  3. PRILOSEC [Concomitant]
     Dosage: UNK, UNK
     Route: 065
  4. PANCREATIC ENZYMES [Concomitant]
     Dosage: UNK, UNK
     Route: 065

REACTIONS (2)
  - ONCOLOGIC COMPLICATION [None]
  - VEIN DISORDER [None]
